FAERS Safety Report 7720177-X (Version None)
Quarter: 2011Q3

REPORT INFORMATION
  Report Type: 
  Country: None (occurrence: None)
  Receive Date: 20110831
  Receipt Date: 20110817
  Transmission Date: 20111222
  Serious: Yes (Hospitalization)
  Sender: FDA-Public Use
  Company Number: JP-CELGENEUS-087-21880-11043152

PATIENT
  Sex: Male

DRUGS (19)
  1. DEXAMETHASONE [Suspect]
     Indication: MULTIPLE MYELOMA
     Dosage: 20 MILLIGRAM
     Route: 048
     Dates: start: 20101022, end: 20101112
  2. DEXAMETHASONE [Suspect]
     Dosage: 20 MILLIGRAM
     Route: 048
     Dates: start: 20101119, end: 20110113
  3. ETODOLAC [Concomitant]
     Dosage: 400 MILLIGRAM
     Route: 048
     Dates: start: 20061206, end: 20110303
  4. ASPIRIN [Concomitant]
     Indication: PROPHYLAXIS
     Dosage: 100 MILLIGRAM
     Route: 048
     Dates: start: 20101021, end: 20110303
  5. REVLIMID [Suspect]
     Dosage: 10 MILLIGRAM
     Route: 048
     Dates: start: 20110114, end: 20110203
  6. DEXAMETHASONE [Suspect]
     Dosage: 20 MILLIGRAM
     Route: 048
     Dates: start: 20110114, end: 20110225
  7. SIGMART [Concomitant]
     Indication: ANGINA PECTORIS
     Dosage: 20 MILLIGRAM
     Route: 048
     Dates: start: 20090331, end: 20110303
  8. LANSOPRAZOLE [Concomitant]
     Indication: PROPHYLAXIS
     Dosage: 15 MILLIGRAM
     Route: 048
     Dates: start: 20061202, end: 20110303
  9. FENTANYL [Concomitant]
     Dosage: 6.3 MILLIGRAM
     Route: 061
     Dates: start: 20100108, end: 20110303
  10. OXINORM [Concomitant]
     Dosage: 5 MILLIGRAM
     Route: 048
     Dates: start: 20090602, end: 20110303
  11. MAGMITT [Concomitant]
     Indication: ANGINA PECTORIS
     Dosage: 990 MILLIGRAM
     Route: 048
     Dates: start: 20061205, end: 20110303
  12. ISOSORBIDE DINITRATE [Concomitant]
     Indication: ANGINA PECTORIS
     Dosage: 40 MILLIGRAM
     Route: 061
     Dates: start: 20100106, end: 20110303
  13. REVLIMID [Suspect]
     Indication: MULTIPLE MYELOMA
     Dosage: 10 MILLIGRAM
     Route: 048
     Dates: start: 20101022, end: 20101111
  14. REVLIMID [Suspect]
     Dosage: 10 MILLIGRAM
     Route: 048
     Dates: start: 20101217, end: 20110106
  15. REVLIMID [Suspect]
     Dosage: 10 MILLIGRAM
     Route: 048
     Dates: start: 20110211, end: 20110303
  16. MUCOSTA [Concomitant]
     Indication: PROPHYLAXIS
     Dosage: 300 MILLIGRAM
     Route: 048
     Dates: start: 20060919, end: 20110303
  17. REVLIMID [Suspect]
     Indication: PLASMACYTOMA
     Dosage: 10 MILLIGRAM
     Route: 048
     Dates: start: 20101119, end: 20101209
  18. BAYMYCARD [Concomitant]
     Indication: ANGINA PECTORIS
     Dosage: 20 MILLIGRAM
     Route: 048
     Dates: start: 20100610, end: 20110303
  19. LENDORMIN D [Concomitant]
     Indication: INSOMNIA
     Dosage: .5 MILLIGRAM
     Route: 048
     Dates: start: 20091006, end: 20110303

REACTIONS (2)
  - PNEUMONIA [None]
  - PULMONARY MASS [None]
